FAERS Safety Report 6569581-6 (Version None)
Quarter: 2010Q1

REPORT INFORMATION
  Report Type: 
  Country: None (occurrence: None)
  Receive Date: 20100203
  Receipt Date: 20100203
  Transmission Date: 20100710
  Serious: Yes (Other)
  Sender: FDA-Public Use
  Company Number: None

PATIENT
  Age: 68 Year
  Sex: Male
  Weight: 88.4514 kg

DRUGS (1)
  1. TYLENOL (CAPLET) [Suspect]
     Indication: ARTHRITIS
     Dosage: 650 MG 2 TABS 1 OR 2 TIME A DAY
     Dates: start: 20090801, end: 20091201

REACTIONS (6)
  - GASTRIC DISORDER [None]
  - HEADACHE [None]
  - MYOCARDIAL INFARCTION [None]
  - NAUSEA [None]
  - PAIN [None]
  - PRODUCT CONTAMINATION [None]
